FAERS Safety Report 24344566 (Version 4)
Quarter: 2024Q3

REPORT INFORMATION
  Report Type: Spontaneous
  Country: US (occurrence: US)
  Receive Date: 20240920
  Receipt Date: 20240924
  Transmission Date: 20241016
  Serious: Yes (Other)
  Sender: GILEAD
  Company Number: US-GILEAD-2024-0687926

PATIENT
  Sex: Male

DRUGS (1)
  1. LENACAPAVIR [Suspect]
     Active Substance: LENACAPAVIR
     Indication: HIV infection
     Dosage: 927MG SUBCUTANEOUSLY EVERY 6 MONTHS
     Route: 058
     Dates: start: 202405, end: 2024

REACTIONS (5)
  - Ill-defined disorder [Unknown]
  - Skin disorder [Unknown]
  - Injection site pain [Unknown]
  - Infection [Unknown]
  - Fluid retention [Unknown]

NARRATIVE: CASE EVENT DATE: 20240101
